FAERS Safety Report 9752578 (Version 1)
Quarter: 2013Q4

REPORT INFORMATION
  Report Type: Spontaneous
  Country: GB (occurrence: GB)
  Receive Date: 20131213
  Receipt Date: 20131213
  Transmission Date: 20140711
  Serious: Yes (Hospitalization, Other)
  Sender: FDA-Public Use
  Company Number: GB-JNJFOC-20131204094

PATIENT
  Age: 70 Year
  Sex: Female
  Weight: 101 kg

DRUGS (21)
  1. XARELTO [Suspect]
     Indication: PRODUCT USED FOR UNKNOWN INDICATION
     Route: 048
     Dates: start: 20130723, end: 20131112
  2. RISPERIDONE [Concomitant]
     Route: 065
  3. ADCAL-D3 [Concomitant]
     Route: 065
  4. ATORVASTATIN [Concomitant]
     Route: 065
  5. BISOPROLOL FUMARATE [Concomitant]
     Route: 065
  6. CETIRIZINE [Concomitant]
     Route: 065
  7. DEPAKOTE [Concomitant]
     Route: 065
  8. DIAZEPAM [Concomitant]
     Route: 065
  9. FUROSEMIDE [Concomitant]
     Route: 065
  10. ISOSORBIDE MONONITRATE [Concomitant]
     Route: 065
  11. LANSOPRAZOLE [Concomitant]
     Route: 065
  12. LEVOTHYROXINE SODIUM [Concomitant]
     Route: 065
  13. METFORMIN [Concomitant]
     Route: 065
  14. MIRTAZAPINE [Concomitant]
     Route: 065
  15. PARACETAMOL [Concomitant]
     Route: 065
  16. PERINDOPRIL ERBUMINE [Concomitant]
     Route: 065
  17. PRAMIPEXOLE DIHYDROCHLORIDE [Concomitant]
     Route: 065
  18. PREGABALIN [Concomitant]
     Route: 065
  19. ALENDRONIC ACID [Concomitant]
     Route: 065
  20. VENLAFAXINE [Concomitant]
     Route: 065
  21. ZOPICLONE [Concomitant]
     Route: 065

REACTIONS (2)
  - Pulmonary embolism [Recovering/Resolving]
  - Dyspnoea [Recovered/Resolved]
